FAERS Safety Report 24288169 (Version 2)
Quarter: 2024Q4

REPORT INFORMATION
  Report Type: Spontaneous
  Country: JP (occurrence: JP)
  Receive Date: 20240905
  Receipt Date: 20241105
  Transmission Date: 20250114
  Serious: Yes (Death)
  Sender: AMGEN
  Company Number: JP-DSJP-DSJ-2024-143134

PATIENT
  Sex: Female

DRUGS (1)
  1. DENOSUMAB [Suspect]
     Active Substance: DENOSUMAB
     Indication: Osteoporosis
     Dosage: UNK
     Route: 065

REACTIONS (1)
  - Pneumonia aspiration [Fatal]
